FAERS Safety Report 13279299 (Version 1)
Quarter: 2017Q1

REPORT INFORMATION
  Report Type: Report from Study
  Country: US (occurrence: US)
  Receive Date: 20170228
  Receipt Date: 20170228
  Transmission Date: 20170428
  Serious: No
  Sender: FDA-Public Use
  Company Number: US-AMAG PHARMACEUTICALS, INC.-AMAG201600906

PATIENT

DRUGS (5)
  1. MAKENA [Suspect]
     Active Substance: HYDROXYPROGESTERONE CAPROATE
     Indication: PRODUCT USED FOR UNKNOWN INDICATION
     Dosage: 250 MG, WEEKLY
     Route: 030
     Dates: start: 20160420
  2. ASPIRIN. [Concomitant]
     Active Substance: ASPIRIN
     Indication: METHYLENETETRAHYDROFOLATE REDUCTASE GENE MUTATION
     Dosage: 1 TABS, QD
     Route: 048
     Dates: start: 20160311
  3. MACROBID [Concomitant]
     Active Substance: NITROFURANTOIN\NITROFURANTOIN MONOHYDRATE
     Indication: URINARY TRACT INFECTION
     Dosage: 1 TABS, BID
     Route: 048
     Dates: start: 20160309, end: 20160313
  4. PRENATAL VITAMINS [Concomitant]
     Active Substance: VITAMINS
     Indication: PREGNANCY
     Dosage: 1 TABS, QD
     Route: 048
     Dates: start: 20160309
  5. FOLGARD [Concomitant]
     Indication: METHYLENETETRAHYDROFOLATE REDUCTASE GENE MUTATION
     Dosage: 1 TABS, QD
     Route: 048
     Dates: start: 20160311

REACTIONS (1)
  - Cervix cerclage procedure [Unknown]

NARRATIVE: CASE EVENT DATE: 20160519
